FAERS Safety Report 7458587-0 (Version None)
Quarter: 2011Q2

REPORT INFORMATION
  Report Type: 
  Country: None (occurrence: None)
  Receive Date: 20110504
  Receipt Date: 20110425
  Transmission Date: 20111010
  Serious: Yes (Hospitalization)
  Sender: FDA-Public Use
  Company Number: ES-PFIZER INC-2011086130

PATIENT
  Age: 53 Year
  Sex: Female

DRUGS (12)
  1. ACFOL [Concomitant]
     Dosage: 5 MG, 1X/DAY
  2. CLOPIDOGREL [Concomitant]
     Dosage: 75 MG, 1X/DAY
  3. OMEPRAZOLE [Concomitant]
     Dosage: 20 MG, 1X/DAY
  4. RENAGEL [Concomitant]
     Dosage: 2 TABLETS EVERY 8 HOURS
  5. VFEND [Suspect]
     Indication: PNEUMONIA
     Dosage: 200 MG, 2X/DAY
     Route: 042
     Dates: start: 20110324, end: 20110328
  6. PEPSAMAR [Concomitant]
     Dosage: 233 MG, 3X/DAY
  7. CARDURA [Concomitant]
     Dosage: UNK, 1X/DAY
  8. NORVASC [Concomitant]
     Dosage: 5 MG, 2X/DAY
  9. VFEND [Suspect]
     Dosage: 200 MG, 2X/DAY
     Route: 048
     Dates: start: 20110328, end: 20110419
  10. BECOZYME C FORTE [Concomitant]
     Dosage: 1 TABLET 1X/DAY
  11. APROVEL [Concomitant]
     Dosage: 300 UNK, 1X/DAY
  12. SUMIAL [Concomitant]
     Dosage: 10 MG, 2X/DAY

REACTIONS (1)
  - UPPER GASTROINTESTINAL HAEMORRHAGE [None]
